FAERS Safety Report 13604379 (Version 1)
Quarter: 2017Q2

REPORT INFORMATION
  Report Type: Spontaneous
  Country: US (occurrence: US)
  Receive Date: 20170601
  Receipt Date: 20170601
  Transmission Date: 20170830
  Serious: Yes (Life-Threatening)
  Sender: FDA-Public Use
  Company Number: None

PATIENT
  Age: 81 Year
  Sex: Female
  Weight: 60.5 kg

DRUGS (1)
  1. DIGOXIN. [Suspect]
     Active Substance: DIGOXIN
     Indication: CARDIAC FAILURE CONGESTIVE
     Route: 048
     Dates: start: 20170520, end: 20170601

REACTIONS (9)
  - Nausea [None]
  - Bradycardia [None]
  - Blood creatinine increased [None]
  - Treatment noncompliance [None]
  - Vomiting [None]
  - Vision blurred [None]
  - Abnormal behaviour [None]
  - Cardioactive drug level increased [None]
  - Therapy change [None]

NARRATIVE: CASE EVENT DATE: 20170601
